FAERS Safety Report 7423818-X (Version None)
Quarter: 2011Q1

REPORT INFORMATION
  Report Type: 
  Country: None (occurrence: None)
  Receive Date: 20110331
  Receipt Date: 20110316
  Transmission Date: 20110831
  Serious: Yes (Death, Hospitalization)
  Sender: FDA-Public Use
  Company Number: 2011027847

PATIENT
  Age: 77 Year
  Sex: Female
  Weight: 45.3597 kg

DRUGS (24)
  1. ZOCOR [Concomitant]
  2. CALCIUM (CALCIUM) [Concomitant]
  3. NORVASC [Concomitant]
  4. ASPIRIN [Concomitant]
  5. ALBUTEROL [Concomitant]
  6. SPIRIVA [Concomitant]
  7. PRANDIN (DEFLAZACORT) [Concomitant]
  8. VITAMIN D [Concomitant]
  9. XOPENEX HFA (LEVOSALBUTAMOL) [Concomitant]
  10. WELCHOL [Concomitant]
  11. ACETAMINOPHEN [Concomitant]
  12. DIPHENHYDRAMINE HCL [Concomitant]
  13. PRIVIGEN [Suspect]
     Indication: IMMUNODEFICIENCY COMMON VARIABLE
     Dosage: SEE IMAGE
     Route: 042
     Dates: start: 20101101
  14. PRIVIGEN [Suspect]
     Indication: POLYNEUROPATHY
     Dosage: SEE IMAGE
     Route: 042
     Dates: start: 20101101
  15. LOVAZA (FISH OIL) [Concomitant]
  16. BONIVA [Concomitant]
  17. PRIVIGEN [Suspect]
  18. COZAAR [Concomitant]
  19. PREDNISONE [Concomitant]
  20. DIGOXIN [Concomitant]
  21. BYSTOLIC [Concomitant]
  22. CLONIDINE [Concomitant]
  23. AMBIEN [Concomitant]
  24. VICODIN [Concomitant]

REACTIONS (4)
  - INTRACARDIAC THROMBUS [None]
  - CEREBROVASCULAR ACCIDENT [None]
  - CEREBRAL ARTERY OCCLUSION [None]
  - ATRIAL FIBRILLATION [None]
